FAERS Safety Report 5847809-5 (Version None)
Quarter: 2008Q3

REPORT INFORMATION
  Report Type: 
  Country: None (occurrence: None)
  Receive Date: 20080818
  Receipt Date: 20080813
  Transmission Date: 20090109
  Serious: Yes (Death, Hospitalization, Congenital Anomaly, Other)
  Sender: FDA-Public Use
  Company Number: GB-TEVA-151265ISR

PATIENT
  Sex: Female
  Weight: 3.615 kg

DRUGS (5)
  1. FLUOXETINE [Suspect]
     Indication: ANXIETY
     Route: 064
     Dates: start: 20060914
  2. FLUOXETINE [Suspect]
     Indication: PANIC REACTION
  3. SERTRALINE HYDROCHLORIDE [Suspect]
     Indication: ANXIETY
     Route: 048
     Dates: start: 20060323
  4. SERTRALINE HYDROCHLORIDE [Suspect]
     Indication: DEPRESSION
     Route: 064
     Dates: end: 20060914
  5. SERTRALINE HYDROCHLORIDE [Suspect]
     Indication: PANIC REACTION

REACTIONS (3)
  - CONGENITAL BRAIN DAMAGE [None]
  - ENCEPHALITIS [None]
  - NEONATAL ASPHYXIA [None]
